FAERS Safety Report 18646129 (Version 1)
Quarter: 2020Q4

REPORT INFORMATION
  Report Type: Spontaneous
  Country: US (occurrence: US)
  Receive Date: 20201222
  Receipt Date: 20201222
  Transmission Date: 20210114
  Serious: Yes (Hospitalization)
  Sender: FDA-Public Use
  Company Number: US-APOTEX-2020AP024390

PATIENT
  Age: 77 Year
  Sex: Male

DRUGS (3)
  1. FLECAINIDE [Suspect]
     Active Substance: FLECAINIDE
     Indication: SINUS ARRHYTHMIA
     Dosage: 200 MILLIGRAM
     Route: 048
  2. FLECAINIDE [Suspect]
     Active Substance: FLECAINIDE
     Indication: PALPITATIONS
     Dosage: 75 MILLIGRAM, PRN
     Route: 065
  3. METOPROLOL TARTRATE. [Concomitant]
     Active Substance: METOPROLOL TARTRATE
     Indication: PALPITATIONS
     Dosage: 25 MILLIGRAM, BID
     Route: 065

REACTIONS (1)
  - Atrial flutter [Recovering/Resolving]
